FAERS Safety Report 7280785-X (Version None)
Quarter: 2011Q1

REPORT INFORMATION
  Report Type: 
  Country: None (occurrence: None)
  Receive Date: 20110208
  Receipt Date: 20110126
  Transmission Date: 20110831
  Serious: Yes (Other)
  Sender: FDA-Public Use
  Company Number: US-ROCHE-755815

PATIENT
  Age: 18 Year
  Sex: Female
  Weight: 138 kg

DRUGS (11)
  1. ACTEMRA [Suspect]
     Indication: RHEUMATOID ARTHRITIS
     Dosage: FORM: INFUSION; ORDER DOSE: 560 MG, PACKAGE: 20 ML VIAL
     Route: 042
     Dates: start: 20110108
  2. ACTEMRA [Suspect]
     Dosage: ORDER DOSE: 560 MG, PACKAGE: 4 ML VIAL
     Route: 042
     Dates: start: 20101111
  3. ACTEMRA [Suspect]
     Route: 042
     Dates: start: 20101209
  4. FERROUS SULFATE TAB [Concomitant]
  5. LORA TAB [Concomitant]
     Dosage: DRUG: HYDROCODONE/TYLENOL: 7.5MG/500MG
  6. IMITREX [Concomitant]
     Dosage: AS NEEDED; DRUG REPORTED AS EMITREX
  7. FOLGARD [Concomitant]
  8. METHOTREXATE [Concomitant]
     Dosage: DOSE: 30 MG/12TABS/WEEKLY
  9. CHOLECALCIFEROL [Concomitant]
     Dosage: DRUG: VITT D1; DOSE: 2000 U
  10. PREVACID [Concomitant]
  11. ACTEMRA [Suspect]
     Route: 042
     Dates: start: 20101011

REACTIONS (6)
  - MUSCULOSKELETAL PAIN [None]
  - DYSPNOEA [None]
  - CHEST PAIN [None]
  - DIARRHOEA [None]
  - VOMITING [None]
  - HEADACHE [None]
